FAERS Safety Report 25806361 (Version 1)
Quarter: 2025Q3

REPORT INFORMATION
  Report Type: Spontaneous
  Country: EU (occurrence: EU)
  Receive Date: 20250916
  Receipt Date: 20250916
  Transmission Date: 20251020
  Serious: Yes (Hospitalization, Other)
  Sender: SANOFI AVENTIS
  Company Number: None

PATIENT
  Sex: Male

DRUGS (19)
  1. OXALIPLATIN [Suspect]
     Active Substance: OXALIPLATIN
     Indication: Metastatic neoplasm
     Dates: start: 201703
  2. OXALIPLATIN [Suspect]
     Active Substance: OXALIPLATIN
     Indication: Rectal cancer
  3. CAPECITABINE [Suspect]
     Active Substance: CAPECITABINE
     Indication: Rectal cancer
     Dosage: 1500 MG, BID (3-0-31500 MG /2 X PER DAYSTRENGTH: 500 MG)
     Route: 048
     Dates: start: 201703
  4. FLUOROURACIL [Suspect]
     Active Substance: FLUOROURACIL
     Indication: Metastases to lung
     Dates: start: 201712
  5. FLUOROURACIL [Suspect]
     Active Substance: FLUOROURACIL
     Indication: Rectal cancer
  6. IRINOTECAN [Suspect]
     Active Substance: IRINOTECAN
     Indication: Metastases to lung
     Dates: start: 201712
  7. IRINOTECAN [Suspect]
     Active Substance: IRINOTECAN
     Indication: Rectal cancer
  8. ZALTRAP [Suspect]
     Active Substance: ZIV-AFLIBERCEPT
     Indication: Metastases to lung
     Dates: start: 201712
  9. ZALTRAP [Suspect]
     Active Substance: ZIV-AFLIBERCEPT
     Indication: Rectal cancer
  10. AVASTIN [Suspect]
     Active Substance: BEVACIZUMAB
     Indication: Metastatic neoplasm
     Dates: start: 201703
  11. AVASTIN [Suspect]
     Active Substance: BEVACIZUMAB
     Indication: Rectal cancer
  12. LEUCOVORIN [Suspect]
     Active Substance: LEUCOVORIN\LEUCOVORIN CALCIUM
     Indication: Metastases to lung
     Dates: start: 201712
  13. LEUCOVORIN [Suspect]
     Active Substance: LEUCOVORIN\LEUCOVORIN CALCIUM
     Indication: Rectal cancer
  14. TIPIRACIL [Suspect]
     Active Substance: TIPIRACIL
     Indication: Rectal cancer
     Dates: start: 201804
  15. TRIFLURIDINE [Suspect]
     Active Substance: TRIFLURIDINE
     Indication: Metastases to lung
     Dosage: 60 MG, BID (STRENGTH: 20 MG3-0-3)
     Dates: start: 201804
  16. TRIFLURIDINE [Suspect]
     Active Substance: TRIFLURIDINE
     Indication: Rectal cancer
  17. XELODA [Suspect]
     Active Substance: CAPECITABINE
     Indication: Metastatic neoplasm
  18. CAPECITABINE [Concomitant]
     Active Substance: CAPECITABINE
     Indication: Rectal cancer
     Dosage: 1500 MG, BID (3-0-31500 MG /2 X PER DAYSTRENGTH: 500 MG)
     Route: 048
     Dates: start: 201606
  19. PERINDOPRIL [Concomitant]
     Active Substance: PERINDOPRIL
     Indication: Hypertension

REACTIONS (14)
  - Peritonsillar abscess [Recovered/Resolved]
  - Gastrointestinal toxicity [Unknown]
  - Leukopenia [Unknown]
  - Neutropenia [Unknown]
  - Therapy partial responder [Unknown]
  - Defaecation urgency [Unknown]
  - Disease progression [Unknown]
  - Palmar-plantar erythrodysaesthesia syndrome [Unknown]
  - Skin toxicity [Unknown]
  - Mucosal inflammation [Unknown]
  - Condition aggravated [Unknown]
  - Hypertension [Recovered/Resolved]
  - Diarrhoea [Unknown]
  - Dyspepsia [Unknown]

NARRATIVE: CASE EVENT DATE: 20160101
